FAERS Safety Report 4712828-9 (Version None)
Quarter: 2005Q3

REPORT INFORMATION
  Report Type: 
  Country: None (occurrence: None)
  Receive Date: 20050712
  Receipt Date: 20050712
  Transmission Date: 20060218
  Serious: No
  Sender: FDA-Public Use
  Company Number: None

PATIENT
  Age: 36 Year
  Sex: Male
  Weight: 69.5 kg

DRUGS (2)
  1. ATROVENT [Suspect]
     Indication: ASTHMA
     Dosage: 0.5MG Q6H
     Dates: start: 20050710
  2. ATROVENT [Suspect]
     Indication: CONDITION AGGRAVATED
     Dosage: 0.5MG Q6H
     Dates: start: 20050710

REACTIONS (8)
  - ASTHMA [None]
  - CONDITION AGGRAVATED [None]
  - CONTRAINDICATION TO MEDICAL TREATMENT [None]
  - DYSPNOEA [None]
  - FEELING ABNORMAL [None]
  - HEART RATE INCREASED [None]
  - OXYGEN SATURATION DECREASED [None]
  - SKIN DISCOLOURATION [None]
